FAERS Safety Report 11813240 (Version 1)
Quarter: 2015Q4

REPORT INFORMATION
  Report Type: Spontaneous
  Country: US (occurrence: US)
  Receive Date: 20151209
  Receipt Date: 20151209
  Transmission Date: 20160305
  Serious: No
  Sender: FDA-Public Use
  Company Number: US-HOSPIRA-2694967

PATIENT

DRUGS (2)
  1. DEXTROSE. [Suspect]
     Active Substance: DEXTROSE
     Indication: MEDICATION DILUTION
     Dosage: NOT REPORTED
     Dates: start: 201501
  2. DILTIAZEM HYDROCHLORIDE. [Suspect]
     Active Substance: DILTIAZEM HYDROCHLORIDE
     Indication: PRODUCT USED FOR UNKNOWN INDICATION
     Dosage: NOT REPORTED
     Dates: start: 201501

REACTIONS (3)
  - Drug dose omission [Recovered/Resolved]
  - Product container issue [Recovered/Resolved]
  - Product container seal issue [Recovered/Resolved]

NARRATIVE: CASE EVENT DATE: 201501
